FAERS Safety Report 7704149-7 (Version None)
Quarter: 2011Q3

REPORT INFORMATION
  Report Type: 
  Country: None (occurrence: None)
  Receive Date: 20110818
  Receipt Date: 20110808
  Transmission Date: 20111222
  Serious: Yes (Hospitalization)
  Sender: FDA-Public Use
  Company Number: OMPQ-NO-1108S-0789

PATIENT
  Age: 81 Year
  Sex: Female

DRUGS (1)
  1. OMNIPAQUE 70 [Suspect]
     Indication: METASTASES TO CENTRAL NERVOUS SYSTEM
     Dosage: 50 ML, SINGLE DOSE, INTRAVENOUS
     Route: 042
     Dates: start: 20110726, end: 20110726

REACTIONS (5)
  - BLOOD PRESSURE INCREASED [None]
  - COUGH [None]
  - CYANOSIS [None]
  - CHILLS [None]
  - VENTRICULAR TACHYCARDIA [None]
